FAERS Safety Report 7315280-2 (Version None)
Quarter: 2011Q1

REPORT INFORMATION
  Report Type: 
  Country: None (occurrence: None)
  Receive Date: 20110225
  Receipt Date: 20110217
  Transmission Date: 20110831
  Serious: Yes (Hospitalization)
  Sender: FDA-Public Use
  Company Number: IT-ROCHE-761281

PATIENT
  Sex: Female
  Weight: 52 kg

DRUGS (13)
  1. RAMIPRIL [Concomitant]
     Dosage: DOSE:1/2 OPR
     Dates: start: 20060101
  2. BEVACIZUMAB [Suspect]
     Route: 042
     Dates: start: 20100406
  3. OXALIPLATIN [Suspect]
     Route: 042
     Dates: start: 20100406
  4. LORAZEPAM [Concomitant]
     Dates: start: 20100326
  5. LANSOPRAZOL [Concomitant]
     Dates: start: 20100326
  6. IRINOTECAN HCL [Suspect]
     Route: 042
     Dates: start: 20100406
  7. OXALIPLATIN [Suspect]
     Dosage: FORM VIAL; LAST DOSE ON 2 MAR 2010
     Route: 042
     Dates: start: 20100126, end: 20100311
  8. FLUOROURACIL [Suspect]
     Route: 042
     Dates: start: 20100126, end: 20100311
  9. IRINOTECAN [Suspect]
     Dosage: FORM: VIAL; LAST DOSE ON 2 MAR 2010
     Route: 042
     Dates: start: 20100126, end: 20100511
  10. FOLINIC ACID [Suspect]
     Dosage: FORM: VIAL; LAST DOSE ON 2 MAR 2010
     Route: 042
     Dates: start: 20100126, end: 20100311
  11. BEVACIZUMAB [Suspect]
     Dosage: LAST DOSE ON 02 MAR 2010
     Route: 042
     Dates: start: 20100126, end: 20100311
  12. FLUOROURACIL [Suspect]
     Route: 042
     Dates: start: 20100406
  13. FOLINIC ACID [Suspect]
     Route: 042
     Dates: start: 20100406

REACTIONS (2)
  - GENERAL PHYSICAL HEALTH DETERIORATION [None]
  - FEBRILE NEUTROPENIA [None]
